FAERS Safety Report 9632057 (Version 3)
Quarter: 2014Q2

REPORT INFORMATION
  Report Type: Spontaneous
  Country: US (occurrence: US)
  Receive Date: 20131018
  Receipt Date: 20140414
  Transmission Date: 20141212
  Serious: Yes (Other)
  Sender: FDA-Public Use
  Company Number: US-ROCHE-1288926

PATIENT
  Sex: Female

DRUGS (11)
  1. XOLAIR [Suspect]
     Indication: ASTHMA
     Route: 065
  2. ADVAIR [Concomitant]
     Indication: ASTHMA
     Dosage: 2 PUFF, INHALED
     Route: 065
  3. VERAMYST [Concomitant]
     Indication: COUGH
     Dosage: 2 SPRAY INTRANASAL
     Route: 065
  4. ASTEPRO [Concomitant]
  5. NORPACE [Concomitant]
  6. DILTIAZEM ER [Concomitant]
  7. LASIX [Concomitant]
  8. DIOVAN [Concomitant]
  9. LOVAZA [Concomitant]
  10. CLARITHROMYCIN [Concomitant]
  11. DULERA [Concomitant]
     Dosage: 200/5 MCG
     Route: 065

REACTIONS (14)
  - Pneumonia [Not Recovered/Not Resolved]
  - Muscle spasms [Not Recovered/Not Resolved]
  - Heart rate increased [Not Recovered/Not Resolved]
  - Peripheral swelling [Not Recovered/Not Resolved]
  - Gravitational oedema [Not Recovered/Not Resolved]
  - Abdominal distension [Not Recovered/Not Resolved]
  - Pain in extremity [Not Recovered/Not Resolved]
  - Vaginal infection [Not Recovered/Not Resolved]
  - Chest pain [Not Recovered/Not Resolved]
  - Oropharyngitis fungal [Not Recovered/Not Resolved]
  - Myocardial oedema [Not Recovered/Not Resolved]
  - Asthma [Not Recovered/Not Resolved]
  - Cellulitis [Not Recovered/Not Resolved]
  - Oropharyngitis fungal [Not Recovered/Not Resolved]
